FAERS Safety Report 9227463 (Version 1)
Quarter: 2013Q2

REPORT INFORMATION
  Report Type: Report from Study
  Country: DK (occurrence: DK)
  Receive Date: 20130412
  Receipt Date: 20130412
  Transmission Date: 20140414
  Serious: Yes (Hospitalization)
  Sender: FDA-Public Use
  Company Number: DK-MPIJNJ-2013-02273

PATIENT
  Sex: 0

DRUGS (8)
  1. VELCADE [Suspect]
     Indication: PLASMA CELL MYELOMA
     Dosage: 2.5 MG, UNK
     Route: 042
     Dates: start: 20130308
  2. CYCLOPHOSPHAMIDE [Suspect]
     Indication: PLASMA CELL MYELOMA
     Dosage: 965 MG, UNK
     Route: 042
     Dates: start: 20130308
  3. DEXAMETHASONE [Suspect]
     Indication: PLASMA CELL MYELOMA
     Dosage: 40 MG, UNK
     Route: 048
     Dates: start: 20130308
  4. PANTOPRAZOLE [Concomitant]
     Dosage: 40 MG, UNK
     Route: 048
  5. TAZOCIN [Concomitant]
     Dosage: 4 G, UNK
     Route: 042
  6. METRONIDAZOLE [Concomitant]
     Dosage: 500 MG, UNK
     Route: 042
  7. PINEX                              /00020001/ [Concomitant]
     Dosage: 1000 MG, UNK
     Route: 048
  8. ACICLOVIR [Concomitant]
     Dosage: 800 MG, UNK
     Route: 048

REACTIONS (1)
  - Diverticulum intestinal [Recovered/Resolved]
